FAERS Safety Report 6344213-0 (Version None)
Quarter: 2009Q3

REPORT INFORMATION
  Report Type: 
  Country: None (occurrence: None)
  Receive Date: 20090908
  Receipt Date: 20090828
  Transmission Date: 20100115
  Serious: Yes (Hospitalization)
  Sender: FDA-Public Use
  Company Number: FR-PFIZER INC-2009260930

PATIENT
  Age: 63 Year

DRUGS (5)
  1. TAHOR [Suspect]
     Indication: HYPERCHOLESTEROLAEMIA
     Dosage: 10 MG, 1X/DAY
     Dates: start: 20081001
  2. BECLOMETASON/FORMOTEROL [Concomitant]
     Dosage: UNK
     Dates: start: 20090530
  3. AIROMIR [Concomitant]
     Dosage: UNK
     Dates: start: 20090530
  4. BRICANYL [Concomitant]
     Dosage: UNK
     Dates: start: 20090608
  5. ATROVENT [Concomitant]
     Dosage: UNK
     Dates: start: 20090608

REACTIONS (2)
  - COUGH [None]
  - DYSPNOEA [None]
